FAERS Safety Report 7091454-3 (Version None)
Quarter: 2010Q4

REPORT INFORMATION
  Report Type: 
  Country: None (occurrence: None)
  Receive Date: 20101109
  Receipt Date: 20101103
  Transmission Date: 20110411
  Serious: Yes (Other)
  Sender: FDA-Public Use
  Company Number: DE-ROCHE-739226

PATIENT

DRUGS (3)
  1. COPEGUS [Suspect]
     Dosage: TREATMENT FOR 3 WEEKS IN COMBINATION WITH PEG-INTERFERON ALFA 2A
     Route: 065
     Dates: start: 20100601, end: 20100701
  2. COPEGUS [Suspect]
     Dosage: MONOTHERAPY
     Route: 065
     Dates: start: 20101001
  3. PEGASYS [Suspect]
     Dosage: TREATMENT FOR 3 WEEKS IN COMBINATION WITH RIBAVIRN
     Route: 065
     Dates: start: 20100601, end: 20100701

REACTIONS (2)
  - BLOOD BILIRUBIN UNCONJUGATED INCREASED [None]
  - TRANSAMINASES INCREASED [None]
